FAERS Safety Report 15642523 (Version 1)
Quarter: 2018Q4

REPORT INFORMATION
  Report Type: Report from Study
  Country: None (occurrence: BR)
  Receive Date: 20181121
  Receipt Date: 20181121
  Transmission Date: 20190205
  Serious: Yes (Other)
  Sender: FDA-Public Use
  Company Number: BR-ABBVIE-18P-020-2557615-00

PATIENT
  Sex: Female
  Weight: 58 kg

DRUGS (12)
  1. GLIFAGE [Concomitant]
     Active Substance: METFORMIN HYDROCHLORIDE
     Indication: DIABETES MELLITUS
     Dosage: MORNING, AFTER LUNCH, AFTER DINNER; START DATE: 2002 OR 2003; DAILY DOSE: 3 TABLETS
     Route: 048
  2. CARDIZEM [Concomitant]
     Active Substance: DILTIAZEM HYDROCHLORIDE
     Indication: BLOOD PRESSURE MANAGEMENT
     Dosage: MORNING; START DATE: ABOUT 2012; ONGOING; CARDIZEM SR (DILTIAZEM HYDROCHLORIDE) 90 MG
     Route: 048
  3. CIPROFLOXACIN. [Concomitant]
     Active Substance: CIPROFLOXACIN
     Indication: URINARY TRACT INFECTION
     Dosage: START DATE: 2000 OR 2010; DAILY DOSE: 2 TABLET
     Route: 048
  4. SYNTHROID [Suspect]
     Active Substance: LEVOTHYROXINE SODIUM
     Indication: THYROID DISORDER
     Dosage: MORNING, FASTING; START DATE: OVER 10 YEARS AGO; DAILY DOSE: 1 TABLET
     Route: 048
  5. SYNTHROID [Suspect]
     Active Substance: LEVOTHYROXINE SODIUM
     Indication: HYPOTHYROIDISM
  6. SINVASCOR [Concomitant]
     Active Substance: SIMVASTATIN
     Indication: CARDIAC DISORDER
     Dosage: AT NIGHT; START DATE: AFTER THE FIRST BREAST CANCER; DAILY DOSE: 20 MG
     Route: 048
     Dates: start: 2000
  7. FORMOTEROL FUMARATE [Concomitant]
     Active Substance: FORMOTEROL FUMARATE
     Indication: ASTHMA
     Dosage: ALENIA (FORMOTEROL FUMARATE)
     Route: 055
     Dates: start: 2010
  8. PANTOPRAZOLE [Concomitant]
     Active Substance: PANTOPRAZOLE
     Indication: ABDOMINAL DISCOMFORT
     Dosage: MORNING; DAILY DOSE: 1 TABLET
     Route: 048
  9. INVOKANA [Concomitant]
     Active Substance: CANAGLIFLOZIN
     Indication: DIABETES MELLITUS
     Dosage: DOSE: 300 MG;
     Route: 048
     Dates: start: 2010
  10. LIPIDIL [Concomitant]
     Active Substance: FENOFIBRATE
     Indication: BLOOD TRIGLYCERIDES ABNORMAL
     Dosage: AT NIGHT; START DATE: 3 YEARS AGO; ONGOING; DAILY DOSE: 1 TABLET
     Route: 048
  11. CHOLECALCIFEROL [Concomitant]
     Active Substance: CHOLECALCIFEROL
     Indication: BONE DISORDER
     Route: 048
  12. EXODUS [Concomitant]
     Indication: DEPRESSION
     Dosage: START DATE: SINCE THE FIRST BREAST CANCER; ONGOING
     Route: 048

REACTIONS (1)
  - Breast cancer [Not Recovered/Not Resolved]

NARRATIVE: CASE EVENT DATE: 2010
